FAERS Safety Report 10160443 (Version 1)
Quarter: 2014Q2

REPORT INFORMATION
  Report Type: Spontaneous
  Country: IT (occurrence: IT)
  Receive Date: 20140508
  Receipt Date: 20140508
  Transmission Date: 20141212
  Serious: Yes (Hospitalization)
  Sender: FDA-Public Use
  Company Number: IT-TEVA-480213ISR

PATIENT
  Age: 40 Year
  Sex: Male

DRUGS (5)
  1. ZOLPIDEM [Suspect]
     Indication: INTENTIONAL SELF-INJURY
     Dosage: 40 DF TOTAL
     Route: 048
     Dates: start: 20140426, end: 20140426
  2. INDOXEN - 50 MG CAPSULE RIGIDE [Suspect]
     Indication: INTENTIONAL SELF-INJURY
     Dosage: 5 DF TOTAL
     Route: 048
     Dates: start: 20140426, end: 20140426
  3. EN - 1 MG/ML GOCCE ORALI, SOLUZIONE - ABBOTT S.R.L. [Suspect]
     Indication: INTENTIONAL SELF-INJURY
     Dosage: 80 GTT TOTAL
     Route: 048
     Dates: start: 20140426, end: 20140426
  4. DAPAROX - COMPRESSE RIVESTITE CON FILM [Suspect]
     Indication: INTENTIONAL SELF-INJURY
     Dosage: 2 DF TOTAL
     Route: 048
     Dates: start: 20140426, end: 20140426
  5. GABAPENTIN [Concomitant]
     Indication: PRODUCT USED FOR UNKNOWN INDICATION

REACTIONS (3)
  - Bradykinesia [Recovered/Resolved]
  - Drug abuse [Recovered/Resolved]
  - Intentional self-injury [Recovered/Resolved]
